FAERS Safety Report 5248511-3 (Version None)
Quarter: 2007Q1

REPORT INFORMATION
  Report Type: 
  Country: None (occurrence: None)
  Receive Date: 20070222
  Receipt Date: 20070206
  Transmission Date: 20070707
  Serious: Yes (Other)
  Sender: FDA-Public Use
  Company Number: 07-000326

PATIENT
  Age: 59 Year
  Sex: Female

DRUGS (1)
  1. DURICEF [Suspect]
     Indication: EAR INFECTION
     Dosage: 500 MG, BID, ORAL
     Route: 048
     Dates: start: 20070131, end: 20070203

REACTIONS (9)
  - ANGIOEDEMA [None]
  - DYSPNOEA [None]
  - FACE OEDEMA [None]
  - FEELING ABNORMAL [None]
  - LOCAL SWELLING [None]
  - OEDEMA MOUTH [None]
  - PYREXIA [None]
  - TONGUE OEDEMA [None]
  - URINARY RETENTION [None]
